FAERS Safety Report 8801822 (Version 1)
Quarter: 2012Q4

REPORT INFORMATION
  Report Type: 
  Country: ZA (occurrence: ZA)
  Receive Date: 20120921
  Receipt Date: 20120921
  Transmission Date: 20130627
  Serious: Yes (Hospitalization, Other)
  Sender: FDA-Public Use
  Company Number: ZA-ROCHE-1112390

PATIENT
  Sex: Female

DRUGS (5)
  1. MIRCERA [Suspect]
     Indication: PRODUCT USED FOR UNKNOWN INDICATION
     Route: 058
     Dates: start: 201103, end: 201208
  2. EXFORGE [Concomitant]
  3. TITRALAC [Concomitant]
     Route: 048
  4. LASIX [Concomitant]
     Route: 065
  5. FOLIC ACID [Concomitant]
     Route: 048

REACTIONS (2)
  - Exposure during pregnancy [Unknown]
  - Foetal death [Unknown]
